FAERS Safety Report 7866194-0 (Version None)
Quarter: 2011Q4

REPORT INFORMATION
  Report Type: 
  Country: None (occurrence: None)
  Receive Date: 20111028
  Receipt Date: 20110510
  Transmission Date: 20120403
  Serious: No
  Sender: FDA-Public Use
  Company Number: US-GLAXOSMITHKLINE-A0926798A

PATIENT
  Age: 52 Year
  Sex: Female

DRUGS (11)
  1. NEURONTIN [Concomitant]
  2. CYMBALTA [Concomitant]
  3. ACTONEL [Concomitant]
  4. CRESTOR [Concomitant]
  5. ADVAIR DISKUS 100/50 [Suspect]
     Indication: ASTHMA
     Dosage: 1PUFF TWICE PER DAY
     Route: 055
  6. SYNTHROID [Concomitant]
  7. SINGULAIR [Concomitant]
  8. COMBIVENT [Concomitant]
  9. LANSOPRAZOLE [Concomitant]
  10. SOMA [Concomitant]
  11. VERAMYST [Concomitant]

REACTIONS (1)
  - FUNGAL OESOPHAGITIS [None]
